FAERS Safety Report 7595980-X (Version None)
Quarter: 2011Q3

REPORT INFORMATION
  Report Type: 
  Country: None (occurrence: None)
  Receive Date: 20110707
  Receipt Date: 20110624
  Transmission Date: 20111222
  Serious: Yes (Other)
  Sender: FDA-Public Use
  Company Number: PHHY2011AU57175

PATIENT
  Sex: Female

DRUGS (1)
  1. FEMARA [Suspect]
     Dates: start: 20110501

REACTIONS (3)
  - DYSPAREUNIA [None]
  - ANORECTAL DISCOMFORT [None]
  - URINARY TRACT INFECTION [None]
